FAERS Safety Report 9656021 (Version 2)
Quarter: 2013Q4

REPORT INFORMATION
  Report Type: Report from Study
  Country: FR (occurrence: FR)
  Receive Date: 20131030
  Receipt Date: 20131030
  Transmission Date: 20140711
  Serious: Yes (Death, Life-Threatening, Hospitalization, Other)
  Sender: FDA-Public Use
  Company Number: FR-MILLENNIUM PHARMACEUTICALS, INC.-2013JNJ000102

PATIENT
  Sex: 0

DRUGS (6)
  1. VELCADE [Suspect]
     Indication: PLASMA CELL MYELOMA
     Dosage: 1.3 MG, UNK
     Route: 065
     Dates: start: 20120925, end: 20130412
  2. REVLIMID [Suspect]
     Indication: PLASMA CELL MYELOMA
     Dosage: 10 MG, UNK
     Route: 065
     Dates: start: 20120925, end: 20130806
  3. DEXAMETHASONE [Suspect]
     Indication: PLASMA CELL MYELOMA
     Dosage: 20 MG, UNK
     Route: 065
     Dates: start: 20120925, end: 20130412
  4. DEXAMETHASONE [Suspect]
     Dosage: UNK
     Route: 065
     Dates: start: 20130819
  5. LYRICA [Concomitant]
  6. DOLIPRANE [Concomitant]

REACTIONS (4)
  - Death [Fatal]
  - Septic shock [Unknown]
  - Renal failure acute [Unknown]
  - Haemorrhage [Recovered/Resolved]
